FAERS Safety Report 19264566 (Version 1)
Quarter: 2021Q2

REPORT INFORMATION
  Report Type: Spontaneous
  Country: US (occurrence: US)
  Receive Date: 20210517
  Receipt Date: 20210517
  Transmission Date: 20210717
  Serious: No
  Sender: FDA-Public Use
  Company Number: None

PATIENT
  Age: 82 Year
  Sex: Female
  Weight: 54.43 kg

DRUGS (8)
  1. REFRESH TEARS [Concomitant]
     Active Substance: CARBOXYMETHYLCELLULOSE SODIUM
  2. MAGNESIUM [Concomitant]
     Active Substance: MAGNESIUM
  3. OLMESARTAN 40MG [Concomitant]
     Active Substance: OLMESARTAN
  4. BABY ASPIRIN 81 [Concomitant]
  5. VIT D [Concomitant]
     Active Substance: VITAMIN D NOS
  6. BEMPEDOIC ACID. [Suspect]
     Active Substance: BEMPEDOIC ACID
     Indication: BLOOD CHOLESTEROL INCREASED
     Dosage: ?          QUANTITY:6 ;?
     Route: 048
  7. METHOCARBAM [Concomitant]
     Active Substance: METHOCARBAMOL
  8. LEVOTHYROXINE/FLUTICOSINE [Concomitant]

REACTIONS (1)
  - Weight decreased [None]
